FAERS Safety Report 18604089 (Version 4)
Quarter: 2021Q1

REPORT INFORMATION
  Report Type: Report from Study
  Country: None (occurrence: CO)
  Receive Date: 20201211
  Receipt Date: 20210301
  Transmission Date: 20210419
  Serious: Yes (Other)
  Sender: FDA-Public Use
  Company Number: CO-ABBVIE-20K-036-3333391-00

PATIENT
  Age: 49 Year
  Sex: Female
  Weight: 81 kg

DRUGS (3)
  1. HUMIRA [Suspect]
     Active Substance: ADALIMUMAB
     Indication: HIDRADENITIS
     Route: 058
     Dates: start: 20191217, end: 20200312
  2. HUMIRA [Suspect]
     Active Substance: ADALIMUMAB
     Route: 058
     Dates: end: 202010
  3. HUMIRA [Suspect]
     Active Substance: ADALIMUMAB
     Route: 058
     Dates: start: 2020, end: 20201211

REACTIONS (21)
  - Drug hypersensitivity [Unknown]
  - Pain in extremity [Not Recovered/Not Resolved]
  - Headache [Unknown]
  - Drug ineffective [Unknown]
  - Decreased appetite [Unknown]
  - Purulent discharge [Unknown]
  - Vulval abscess [Unknown]
  - Crying [Unknown]
  - Feeling of despair [Unknown]
  - Furuncle [Recovering/Resolving]
  - Depression [Not Recovered/Not Resolved]
  - Chills [Not Recovered/Not Resolved]
  - Pain [Recovering/Resolving]
  - Self-consciousness [Unknown]
  - Mood altered [Not Recovered/Not Resolved]
  - Self esteem decreased [Recovering/Resolving]
  - Unevaluable event [Unknown]
  - Mobility decreased [Not Recovered/Not Resolved]
  - Wound complication [Not Recovered/Not Resolved]
  - Furuncle [Not Recovered/Not Resolved]
  - Weight decreased [Not Recovered/Not Resolved]

NARRATIVE: CASE EVENT DATE: 2020
